FAERS Safety Report 26036247 (Version 1)
Quarter: 2025Q4

REPORT INFORMATION
  Report Type: Spontaneous
  Country: US (occurrence: US)
  Receive Date: 20251112
  Receipt Date: 20251112
  Transmission Date: 20260117
  Serious: No
  Sender: CIPLA
  Company Number: US-CIPLA LTD.-2025US14027

PATIENT

DRUGS (2)
  1. DICLOFENAC [Suspect]
     Active Substance: DICLOFENAC
     Indication: Muscle strain
     Dosage: UNK
     Route: 061
  2. DICLOFENAC [Suspect]
     Active Substance: DICLOFENAC
     Indication: Arthralgia

REACTIONS (1)
  - Off label use [Unknown]
